FAERS Safety Report 26185517 (Version 1)
Quarter: 2025Q4

REPORT INFORMATION
  Report Type: Spontaneous
  Country: CN (occurrence: CN)
  Receive Date: 20251222
  Receipt Date: 20251222
  Transmission Date: 20260117
  Serious: Yes (Other)
  Sender: CHEPLAPHARM
  Company Number: CN-CHEPLA-2025014301

PATIENT
  Age: 10 Year
  Sex: Male

DRUGS (12)
  1. VALGANCICLOVIR [Suspect]
     Active Substance: VALGANCICLOVIR
     Indication: Cytomegalovirus infection
     Route: 048
  2. VALGANCICLOVIR [Suspect]
     Active Substance: VALGANCICLOVIR
     Indication: Cystitis haemorrhagic
     Route: 048
  3. VALGANCICLOVIR [Suspect]
     Active Substance: VALGANCICLOVIR
     Indication: Antiviral prophylaxis
     Route: 048
  4. GANCICLOVIR [Suspect]
     Active Substance: GANCICLOVIR
     Indication: Cystitis haemorrhagic
     Route: 042
  5. GANCICLOVIR [Suspect]
     Active Substance: GANCICLOVIR
     Indication: Cytomegalovirus infection
     Route: 042
  6. GANCICLOVIR [Suspect]
     Active Substance: GANCICLOVIR
     Indication: Cystitis haemorrhagic
     Route: 048
  7. GANCICLOVIR [Suspect]
     Active Substance: GANCICLOVIR
     Indication: Cytomegalovirus infection
     Route: 048
  8. PREDNISONE [Suspect]
     Active Substance: PREDNISONE
  9. CYCLOSPORINE [Concomitant]
     Active Substance: CYCLOSPORINE
  10. BASILIXIMAB [Concomitant]
     Active Substance: BASILIXIMAB
  11. TACROLIMUS [Concomitant]
     Active Substance: TACROLIMUS
  12. MYCOPHENOLATE MOFETIL [Concomitant]
     Active Substance: MYCOPHENOLATE MOFETIL

REACTIONS (4)
  - Epididymitis [Unknown]
  - Haematuria [Recovering/Resolving]
  - Cystitis interstitial [Recovering/Resolving]
  - Pyrexia [Unknown]
